FAERS Safety Report 17013727 (Version 3)
Quarter: 2019Q4

REPORT INFORMATION
  Report Type: Spontaneous
  Country: HR (occurrence: HR)
  Receive Date: 20191110
  Receipt Date: 20191202
  Transmission Date: 20200122
  Serious: Yes (Death, Hospitalization, Other)
  Sender: FDA-Public Use
  Company Number: HR-ABBVIE-19K-216-2995995-00

PATIENT
  Sex: Male

DRUGS (2)
  1. VENETOCLAX. [Suspect]
     Active Substance: VENETOCLAX
     Dosage: GRADUAL TITRATION OF DOSE TILL 200 MG
     Route: 048
     Dates: start: 2019, end: 20190917
  2. VENETOCLAX. [Suspect]
     Active Substance: VENETOCLAX
     Indication: CHRONIC LYMPHOCYTIC LEUKAEMIA
     Route: 048
     Dates: start: 20190819, end: 2019

REACTIONS (6)
  - White blood cell count increased [Fatal]
  - Neutropenia [Fatal]
  - Haematotoxicity [Fatal]
  - Pneumonia [Fatal]
  - Colitis [Fatal]
  - Chronic lymphocytic leukaemia [Fatal]

NARRATIVE: CASE EVENT DATE: 20190917
